FAERS Safety Report 5803472-0 (Version None)
Quarter: 2008Q3

REPORT INFORMATION
  Report Type: 
  Country: None (occurrence: None)
  Receive Date: 20080708
  Receipt Date: 20080626
  Transmission Date: 20090109
  Serious: Yes (Other)
  Sender: FDA-Public Use
  Company Number: PHHY2008BR12590

PATIENT
  Sex: Female

DRUGS (4)
  1. TOFRANIL [Suspect]
     Dosage: 150MG/DAY
     Dates: start: 19990101
  2. TOFRANIL [Suspect]
     Dosage: 75MG
  3. RIVOTRIL [Concomitant]
     Indication: TREMOR
     Dosage: 1 MG, QD
     Route: 048
     Dates: start: 19990101
  4. PURAN T4 [Concomitant]
     Indication: THYROIDECTOMY
     Dosage: 88 MCG
     Route: 048
     Dates: start: 19880101

REACTIONS (11)
  - ABDOMINAL DISTENSION [None]
  - ACTIVITIES OF DAILY LIVING IMPAIRED [None]
  - ANXIETY [None]
  - BLOOD PRESSURE INCREASED [None]
  - DIPLOPIA [None]
  - FEELING HOT [None]
  - HYPERHIDROSIS [None]
  - INCREASED APPETITE [None]
  - NAUSEA [None]
  - THYROIDECTOMY [None]
  - WEIGHT INCREASED [None]
